FAERS Safety Report 5282046-7 (Version None)
Quarter: 2007Q1

REPORT INFORMATION
  Report Type: 
  Country: None (occurrence: None)
  Receive Date: 20070330
  Receipt Date: 20070327
  Transmission Date: 20070707
  Serious: Yes (Other)
  Sender: FDA-Public Use
  Company Number: US-MERCK-0703USA00028

PATIENT
  Age: 64 Year
  Sex: Male
  Weight: 112 kg

DRUGS (8)
  1. JANUVIA [Suspect]
     Indication: DIABETES MELLITUS NON-INSULIN-DEPENDENT
     Route: 048
     Dates: start: 20060101, end: 20070222
  2. GLUCOPHAGE [Concomitant]
     Route: 065
     Dates: start: 20060901
  3. NORVASC [Concomitant]
     Route: 065
  4. ATACAND [Concomitant]
     Route: 065
  5. LASIX [Concomitant]
     Route: 065
  6. TOPROL-XL [Concomitant]
     Route: 065
  7. ZOCOR [Concomitant]
     Route: 048
  8. NAPROXEN [Concomitant]
     Route: 065

REACTIONS (1)
  - DRUG ERUPTION [None]
